FAERS Safety Report 23340224 (Version 1)
Quarter: 2023Q4

REPORT INFORMATION
  Report Type: Spontaneous
  Country: US (occurrence: US)
  Receive Date: 20231227
  Receipt Date: 20231227
  Transmission Date: 20240109
  Serious: No
  Sender: FDA-Public Use
  Company Number: US-AMGEN-USASP2023226534

PATIENT

DRUGS (1)
  1. SOTORASIB [Suspect]
     Active Substance: SOTORASIB
     Indication: Neoplasm
     Dosage: UNK
     Route: 065

REACTIONS (15)
  - Unevaluable event [Unknown]
  - Pain [Unknown]
  - Somnolence [Unknown]
  - Appetite disorder [Unknown]
  - Depression [Unknown]
  - Anxiety [Unknown]
  - Paraesthesia [Unknown]
  - Hypoaesthesia [Unknown]
  - Stomatitis [Unknown]
  - Rash [Unknown]
  - Constipation [Unknown]
  - Dyspnoea [Unknown]
  - Fatigue [Unknown]
  - Diarrhoea [Unknown]
  - Nausea [Unknown]
